FAERS Safety Report 13614255 (Version 1)
Quarter: 2017Q2

REPORT INFORMATION
  Report Type: Spontaneous
  Country: GB (occurrence: GB)
  Receive Date: 20170606
  Receipt Date: 20170606
  Transmission Date: 20170830
  Serious: Yes (Other)
  Sender: FDA-Public Use
  Company Number: GB-ROCHE-1944271

PATIENT
  Age: 62 Year
  Sex: Female
  Weight: 50.8 kg

DRUGS (3)
  1. TURMERIC [Concomitant]
     Active Substance: HERBALS\TURMERIC
     Route: 065
  2. TEA [Concomitant]
     Active Substance: TEA LEAF
     Route: 065
  3. AVASTIN [Suspect]
     Active Substance: BEVACIZUMAB
     Indication: OVARIAN CANCER
     Dosage: MOST RECENT DOSE ON 07/MAR/2017
     Route: 042
     Dates: start: 20150112

REACTIONS (1)
  - Organising pneumonia [Recovering/Resolving]

NARRATIVE: CASE EVENT DATE: 20170309
